FAERS Safety Report 5144386-1 (Version None)
Quarter: 2006Q4

REPORT INFORMATION
  Report Type: 
  Country: None (occurrence: None)
  Receive Date: 20061030
  Receipt Date: 20061016
  Transmission Date: 20070319
  Serious: Yes (Other)
  Sender: FDA-Public Use
  Company Number: US200610002752

PATIENT
  Age: 57 Year
  Sex: Female

DRUGS (3)
  1. HUMULIN 70/30 [Suspect]
     Indication: DIABETES MELLITUS
     Dates: start: 19950101
  2. ILETIN [Suspect]
  3. HUMAN INSULIN (RDNA) UNK MANU (HUMAN INSULIN (RDNA ORIGIN) UNKNOWN MAN [Suspect]

REACTIONS (4)
  - CATARACT OPERATION [None]
  - EYE DISORDER [None]
  - RETINOPATHY [None]
  - VISUAL DISTURBANCE [None]
